FAERS Safety Report 4974011-1 (Version None)
Quarter: 2006Q2

REPORT INFORMATION
  Report Type: 
  Country: None (occurrence: None)
  Receive Date: 20060410
  Receipt Date: 20060404
  Transmission Date: 20061013
  Serious: Yes (Life-Threatening, Hospitalization, Other)
  Sender: FDA-Public Use
  Company Number: 200610414BNE

PATIENT
  Age: 26 Year
  Sex: Male
  Weight: 74.8 kg

DRUGS (7)
  1. SORAFENIB [Suspect]
     Indication: METASTATIC MALIGNANT MELANOMA
     Dosage: ORAL
     Route: 048
     Dates: start: 20050907, end: 20060405
  2. DACARBAZINE [Suspect]
     Indication: METASTATIC MALIGNANT MELANOMA
     Dosage: INTRAVENOUS
     Route: 042
     Dates: start: 20060315
  3. FERROUS SULFATE TAB [Concomitant]
  4. OMEPRAZOLE [Concomitant]
  5. TRANEXAMIC ACID [Concomitant]
  6. CEPHALEXIN [Concomitant]
  7. MILPAR [Concomitant]

REACTIONS (2)
  - ANAEMIA [None]
  - GASTROINTESTINAL HAEMORRHAGE [None]
